FAERS Safety Report 9741338 (Version 3)
Quarter: 2013Q4

REPORT INFORMATION
  Report Type: Spontaneous
  Country: US (occurrence: US)
  Receive Date: 20131209
  Receipt Date: 20131219
  Transmission Date: 20140711
  Serious: Yes (Other)
  Sender: FDA-Public Use
  Company Number: CHPA2013US017576

PATIENT
  Age: 86 Year
  Sex: Female

DRUGS (4)
  1. VOLTAREN GEL [Suspect]
     Indication: ARTHRALGIA
     Dosage: UNK, BID
     Route: 061
     Dates: start: 201303
  2. VOLTAREN GEL [Suspect]
     Indication: OFF LABEL USE
  3. ASPIRIN [Concomitant]
     Route: 065
  4. AFRIN                              /00360001/ [Concomitant]
     Route: 065

REACTIONS (3)
  - Epistaxis [Recovered/Resolved]
  - Wrong technique in drug usage process [Unknown]
  - Inappropriate schedule of drug administration [Unknown]
